FAERS Safety Report 5671620-1 (Version None)
Quarter: 2008Q1

REPORT INFORMATION
  Report Type: 
  Country: None (occurrence: None)
  Receive Date: 20080313
  Receipt Date: 20080303
  Transmission Date: 20080703
  Serious: Yes (Other)
  Sender: FDA-Public Use
  Company Number: 2008SP004480

PATIENT
  Sex: Male

DRUGS (1)
  1. TEMODAL [Suspect]
     Indication: ANAPLASTIC ASTROCYTOMA

REACTIONS (1)
  - ALANINE AMINOTRANSFERASE INCREASED [None]
